FAERS Safety Report 11431315 (Version 1)
Quarter: 2015Q3

REPORT INFORMATION
  Report Type: Spontaneous
  Country: US (occurrence: US)
  Receive Date: 20150828
  Receipt Date: 20150828
  Transmission Date: 20151125
  Serious: No
  Sender: FDA-Public Use
  Company Number: US-VERTEX PHARMACEUTICALS-2015-003346

PATIENT
  Age: 12 Year
  Sex: Female

DRUGS (2)
  1. ANTIBIOTICS [Concomitant]
     Active Substance: UNSPECIFIED INGREDIENT
     Indication: MYCOBACTERIUM TEST POSITIVE
     Dosage: UNK
  2. ORKAMBI [Suspect]
     Active Substance: IVACAFTOR\LUMACAFTOR
     Indication: CYSTIC FIBROSIS
     Dosage: UNK
     Route: 048

REACTIONS (4)
  - Cough [Unknown]
  - Pulmonary function test decreased [Unknown]
  - Sputum increased [Unknown]
  - Diarrhoea [Unknown]
